FAERS Safety Report 11940920 (Version 4)
Quarter: 2016Q1

REPORT INFORMATION
  Report Type: Report from Study
  Country: US (occurrence: US)
  Receive Date: 20160122
  Receipt Date: 20160217
  Transmission Date: 20160526
  Serious: Yes (Other)
  Sender: FDA-Public Use
  Company Number: US-ABBVIE-16K-163-1539850-00

PATIENT
  Age: 71 Year
  Sex: Male
  Weight: 86.99 kg

DRUGS (1)
  1. HUMIRA [Suspect]
     Active Substance: ADALIMUMAB
     Indication: CROHN^S DISEASE
     Route: 058
     Dates: start: 2008

REACTIONS (13)
  - Incorrect dose administered [Unknown]
  - Abdominal distension [Unknown]
  - Wrong technique in product usage process [Unknown]
  - Wrong technique in product usage process [Unknown]
  - Incorrect dose administered [Unknown]
  - Change of bowel habit [Unknown]
  - Faeces discoloured [Unknown]
  - Wrong technique in product usage process [Unknown]
  - Ileal ulcer [Unknown]
  - Colon adenoma [Unknown]
  - Diabetes mellitus [Unknown]
  - Incorrect dose administered [Unknown]
  - Influenza [Unknown]

NARRATIVE: CASE EVENT DATE: 201510
